FAERS Safety Report 8781610 (Version 2)
Quarter: 2013Q1

REPORT INFORMATION
  Report Type: Spontaneous
  Country: BR (occurrence: BR)
  Receive Date: 20120913
  Receipt Date: 20130225
  Transmission Date: 20140127
  Serious: Yes (Life-Threatening, Hospitalization, Other)
  Sender: FDA-Public Use
  Company Number: PHHY2012BR079607

PATIENT
  Sex: Female
  Weight: 60 kg

DRUGS (8)
  1. DIOVAN HCT [Suspect]
     Indication: HYPERTENSION
     Dosage: 1 DF (80/12.5 MG ), DAILY
     Route: 048
  2. DIOVAN HCT [Suspect]
     Dosage: 1 DF (160/25 MG), DAILY
     Route: 048
  3. LANTUS [Concomitant]
  4. INSULIN [Concomitant]
     Dosage: UNK UKN, TID
  5. TAPAZOL [Concomitant]
     Indication: HYPERTHYROIDISM
     Dosage: 5 MG, DAILY
     Route: 048
  6. ZOLPIDEM [Concomitant]
     Indication: SLEEP DISORDER
     Dosage: 10 MG, QD (AT NIGHT)
     Route: 048
  7. XARELTO [Concomitant]
     Indication: ANTICOAGULANT THERAPY
     Dosage: 20 MG, DAILY
     Route: 048
  8. HYGROTON [Concomitant]
     Dosage: 1 DF, DAILY

REACTIONS (4)
  - Bradycardia [Recovering/Resolving]
  - Pulmonary oedema [Recovering/Resolving]
  - Blood pressure systolic increased [Recovering/Resolving]
  - Fatigue [Recovering/Resolving]
